FAERS Safety Report 23040812 (Version 2)
Quarter: 2024Q1

REPORT INFORMATION
  Report Type: Report from Study
  Country: US (occurrence: US)
  Receive Date: 20231006
  Receipt Date: 20240223
  Transmission Date: 20240409
  Serious: Yes (Other)
  Sender: FDA-Public Use
  Company Number: US-ARGENX-2023-ARGX-US002032

PATIENT

DRUGS (1)
  1. VYVGART [Suspect]
     Active Substance: EFGARTIGIMOD ALFA-FCAB
     Indication: Myasthenia gravis
     Dosage: 10 MG/KG
     Route: 042
     Dates: start: 20230525

REACTIONS (16)
  - Pancreatitis [Unknown]
  - Herpes zoster [Unknown]
  - Fall [Unknown]
  - Contusion [Unknown]
  - Neuralgia [Unknown]
  - Balance disorder [Unknown]
  - Back injury [Unknown]
  - Movement disorder [Unknown]
  - Swelling [Unknown]
  - Hypoaesthesia [Recovering/Resolving]
  - Muscle twitching [Unknown]
  - Limb discomfort [Unknown]
  - Fatigue [Unknown]
  - Asthenia [Unknown]
  - Asthenia [Not Recovered/Not Resolved]
  - Fatigue [Unknown]

NARRATIVE: CASE EVENT DATE: 20230617
